FAERS Safety Report 18378109 (Version 3)
Quarter: 2020Q4

REPORT INFORMATION
  Report Type: Report from Study
  Country: TW (occurrence: TW)
  Receive Date: 20201013
  Receipt Date: 20201119
  Transmission Date: 20210114
  Serious: Yes (Death, Hospitalization)
  Sender: FDA-Public Use
  Company Number: TW-EXELIXIS-CABO-20033807

PATIENT
  Age: 79 Year
  Sex: Male

DRUGS (1)
  1. CABOMETYX [Suspect]
     Active Substance: CABOZANTINIB S-MALATE
     Indication: RENAL CELL CARCINOMA
     Dosage: 60 MG, QOD
     Route: 048
     Dates: start: 20200610, end: 20201016

REACTIONS (5)
  - Dehydration [Not Recovered/Not Resolved]
  - Inappropriate schedule of product administration [Unknown]
  - Death [Fatal]
  - Lethargy [Not Recovered/Not Resolved]
  - Dysphagia [Not Recovered/Not Resolved]

NARRATIVE: CASE EVENT DATE: 20200610
